FAERS Safety Report 8594772-2 (Version None)
Quarter: 2012Q3

REPORT INFORMATION
  Report Type: 
  Country: None (occurrence: None)
  Receive Date: 20120815
  Receipt Date: 20120808
  Transmission Date: 20120928
  Serious: Yes (Hospitalization)
  Sender: FDA-Public Use
  Company Number: US-SHIRE-ALL1-2012-03805

PATIENT
  Sex: Female
  Weight: 37.642 kg

DRUGS (4)
  1. PENTASA [Suspect]
     Indication: CROHN'S DISEASE
  2. PENTASA [Suspect]
     Indication: COLITIS ULCERATIVE
     Dosage: 1000 MG, 3X/DAY:TID
     Route: 048
  3. ZYRTEC [Concomitant]
     Indication: SINUS DISORDER
     Dosage: UNK, AS REQ'D
     Route: 048
  4. NASONEX [Concomitant]
     Indication: SINUS DISORDER
     Dosage: UNK, AS REQ'D
     Route: 045

REACTIONS (4)
  - GASTRITIS [None]
  - NAUSEA [None]
  - CHEST PAIN [None]
  - CONSTIPATION [None]
